FAERS Safety Report 5198444-6 (Version None)
Quarter: 2006Q4

REPORT INFORMATION
  Report Type: 
  Country: None (occurrence: None)
  Receive Date: 20061228
  Receipt Date: 20061228
  Transmission Date: 20070319
  Serious: Yes (Hospitalization)
  Sender: FDA-Public Use
  Company Number: None

PATIENT
  Age: 61 Year
  Sex: Male
  Weight: 62 kg

DRUGS (2)
  1. TRAMADOL HCL [Suspect]
     Indication: ARTHRALGIA
     Dosage: 3 MONTHS
  2. LISINOPRIL [Concomitant]

REACTIONS (5)
  - CONVULSION [None]
  - CONVULSIVE THRESHOLD LOWERED [None]
  - ELECTROENCEPHALOGRAM ABNORMAL [None]
  - INCONTINENCE [None]
  - POSTICTAL STATE [None]
